FAERS Safety Report 11024977 (Version 1)
Quarter: 2015Q2

REPORT INFORMATION
  Report Type: Spontaneous
  Country: US (occurrence: US)
  Receive Date: 20150414
  Receipt Date: 20150414
  Transmission Date: 20150821
  Serious: Yes (Other)
  Sender: FDA-Public Use
  Company Number: US-AMGEN-USASP2014032998

PATIENT
  Age: 69 Year
  Sex: Female

DRUGS (11)
  1. NORTRIPTYLINE [Concomitant]
     Active Substance: NORTRIPTYLINE
     Dosage: 25 MG, QHS
  2. VITAMIN C [Concomitant]
     Active Substance: ASCORBIC ACID
  3. OMEPRAZOLE. [Concomitant]
     Active Substance: OMEPRAZOLE
     Dosage: 40 MG, BID
  4. PROLIA [Suspect]
     Active Substance: DENOSUMAB
     Indication: OSTEOPOROSIS POSTMENOPAUSAL
     Dosage: UNK
     Route: 065
     Dates: start: 2013
  5. FOLIC ACID. [Concomitant]
     Active Substance: FOLIC ACID
     Dosage: 1 MG, QD
  6. LORATADINE. [Concomitant]
     Active Substance: LORATADINE
     Dosage: UNK UNK, QD
  7. FAMOTIDINE. [Concomitant]
     Active Substance: FAMOTIDINE
     Dosage: 40 MG, QHS
  8. TEMAZEPAM. [Concomitant]
     Active Substance: TEMAZEPAM
     Dosage: 30 MG, QHS
  9. CALCIUM [Concomitant]
     Active Substance: CALCIUM
  10. LORAZEPAM. [Concomitant]
     Active Substance: LORAZEPAM
     Dosage: 1 MG, BID
  11. LOSARTAN [Concomitant]
     Active Substance: LOSARTAN
     Dosage: 100 MG, UNK

REACTIONS (32)
  - Cervical spinal stenosis [Unknown]
  - Pain in jaw [Unknown]
  - Nail disorder [Unknown]
  - Hypothyroidism [Unknown]
  - Tooth fracture [Unknown]
  - Stress [Unknown]
  - Bronchitis [Recovered/Resolved]
  - Arthralgia [Not Recovered/Not Resolved]
  - Fatigue [Unknown]
  - Head injury [Unknown]
  - Periodontal disease [Unknown]
  - Joint swelling [Unknown]
  - Pain [Not Recovered/Not Resolved]
  - Back pain [Unknown]
  - Joint injury [Unknown]
  - Intervertebral disc compression [Unknown]
  - Hemiparesis [Unknown]
  - Fall [Unknown]
  - Osteoporosis [Unknown]
  - Neck pain [Recovered/Resolved]
  - Tooth loss [Unknown]
  - Pain in extremity [Not Recovered/Not Resolved]
  - Thoracic vertebral fracture [Recovered/Resolved]
  - Chondropathy [Unknown]
  - Vitamin D decreased [Unknown]
  - Nausea [Recovered/Resolved]
  - Food allergy [Unknown]
  - Ear infection [Recovering/Resolving]
  - Meniscus injury [Unknown]
  - Depression [Unknown]
  - Constipation [Unknown]
  - Abdominal discomfort [Unknown]

NARRATIVE: CASE EVENT DATE: 2012
